FAERS Safety Report 6097473-8 (Version None)
Quarter: 2009Q1

REPORT INFORMATION
  Report Type: 
  Country: None (occurrence: None)
  Receive Date: 20090227
  Receipt Date: 20080721
  Transmission Date: 20090719
  Serious: No
  Sender: FDA-Public Use
  Company Number: A0738643A

PATIENT
  Age: 34 Year
  Sex: Female

DRUGS (14)
  1. IMITREX [Suspect]
     Indication: MIGRAINE
     Dosage: 50MG AS REQUIRED
     Route: 058
     Dates: start: 19820101, end: 19950101
  2. DEPAKOTE [Concomitant]
  3. DITROPAN [Concomitant]
  4. SYNTHROID [Concomitant]
  5. REMERON [Concomitant]
  6. NEXIUM [Concomitant]
  7. FLEXERIL [Concomitant]
  8. LORTAB [Concomitant]
  9. THEOPHYLLINE [Concomitant]
  10. DILTIAZEM [Concomitant]
  11. SOMA [Concomitant]
  12. HALCION [Concomitant]
  13. VALIUM [Concomitant]
  14. VITAMIN B-12 [Concomitant]

REACTIONS (1)
  - INJECTION SITE PAIN [None]
